FAERS Safety Report 10066889 (Version 3)
Quarter: 2014Q2

REPORT INFORMATION
  Report Type: Spontaneous
  Country: KR (occurrence: KR)
  Receive Date: 20140408
  Receipt Date: 20140430
  Transmission Date: 20141212
  Serious: Yes (Hospitalization)
  Sender: FDA-Public Use
  Company Number: KR-BRISTOL-MYERS SQUIBB COMPANY-20034625

PATIENT
  Age: 52 Year
  Sex: Female

DRUGS (11)
  1. ORENCIA [Suspect]
     Dosage: 05-NOV-2012, 03-DEC-2012, 28-JAN-2013, 25-FEB-2013, 26-MAR-2013?LAST DOSE: 23-APR-2013
     Route: 042
     Dates: start: 20121022
  2. AMITRIPTYLINE HCL [Concomitant]
     Dates: start: 20120820
  3. HYDROCHLOROTHIAZIDE [Concomitant]
     Dates: start: 20120306
  4. CHOLECALCIFEROL [Concomitant]
     Dates: start: 20111115
  5. CALCIUM CITRATE [Concomitant]
     Dates: start: 20111115
  6. REBAMIPIDE [Concomitant]
     Dates: start: 20111115
  7. LEVOTHYROXINE SODIUM [Concomitant]
     Dates: start: 20111115
  8. ISONIAZIDE [Concomitant]
     Dates: start: 20120716
  9. PYRIDOXINE HCL [Concomitant]
     Dates: start: 20120716
  10. ACECLOFENAC [Concomitant]
     Dates: start: 20120716
  11. FERROUS SULFATE [Concomitant]
     Dates: start: 20131115

REACTIONS (1)
  - Arthropathy [Recovered/Resolved]
